FAERS Safety Report 22010888 (Version 1)
Quarter: 2023Q1

REPORT INFORMATION
  Report Type: Spontaneous
  Country: US (occurrence: US)
  Receive Date: 20230220
  Receipt Date: 20230220
  Transmission Date: 20230418
  Serious: No
  Sender: FDA-Public Use
  Company Number: US-SA-SAC20230217000568

PATIENT
  Age: 65 Year
  Sex: Female

DRUGS (16)
  1. DUPIXENT [Suspect]
     Active Substance: DUPILUMAB
     Dosage: 300 MG QOW
     Route: 058
  2. FENOFIBRATE [Concomitant]
     Active Substance: FENOFIBRATE
  3. FERROUS SULFATE [Concomitant]
     Active Substance: FERROUS SULFATE
  4. FLUTICASONE [Concomitant]
     Active Substance: FLUTICASONE
  5. JARDIANCE [Concomitant]
     Active Substance: EMPAGLIFLOZIN
  6. TRIAMCINOLONE [Concomitant]
     Active Substance: TRIAMCINOLONE
  7. TRIAMTERENE [Concomitant]
     Active Substance: TRIAMTERENE
  8. ATORVASTATIN [Concomitant]
     Active Substance: ATORVASTATIN
  9. DICLOFENAC [Concomitant]
     Active Substance: DICLOFENAC
  10. GABAPENTIN [Concomitant]
     Active Substance: GABAPENTIN
  11. NOVOLOG [Concomitant]
     Active Substance: INSULIN ASPART
  12. OXYCODONE [Concomitant]
     Active Substance: OXYCODONE
  13. TRESIBA [Concomitant]
     Active Substance: INSULIN DEGLUDEC
  14. TRULICITY [Concomitant]
     Active Substance: DULAGLUTIDE
  15. AMITRIPTYLINE [Concomitant]
     Active Substance: AMITRIPTYLINE
  16. VITAMIN D2 [Concomitant]
     Active Substance: ERGOCALCIFEROL

REACTIONS (3)
  - Diarrhoea [Unknown]
  - Dry skin [Unknown]
  - Fall [Unknown]

NARRATIVE: CASE EVENT DATE: 20230101
